FAERS Safety Report 8999986 (Version 2)
Quarter: 2013Q1

REPORT INFORMATION
  Report Type: Spontaneous
  Country: IE (occurrence: IE)
  Receive Date: 20130102
  Receipt Date: 20130220
  Transmission Date: 20140127
  Serious: Yes (Other)
  Sender: FDA-Public Use
  Company Number: IE-BAYER-2012-134528

PATIENT
  Sex: Female

DRUGS (2)
  1. CIPROXIN [Suspect]
     Indication: URINARY TRACT INFECTION
     Dosage: 500 MG, UNK
     Route: 048
     Dates: start: 20080421, end: 20080430
  2. CYMBALTA [Interacting]
     Indication: DEPRESSION
     Dosage: DOSE REDUCED LATERALLY.60 MG DOWN TO 30 MG DAILY
     Route: 048
     Dates: start: 20080421, end: 20080515

REACTIONS (3)
  - Somnolence [Recovered/Resolved]
  - Somnolence [Recovered/Resolved]
  - Urinary tract infection [Recovered/Resolved]
